FAERS Safety Report 22107956 (Version 5)
Quarter: 2024Q3

REPORT INFORMATION
  Report Type: Report from Study
  Country: CN (occurrence: CN)
  Receive Date: 20230317
  Receipt Date: 20240803
  Transmission Date: 20241016
  Serious: Yes (Hospitalization)
  Sender: TAKEDA
  Company Number: CN-TAKEDA-2023TUS027233

PATIENT
  Age: 50 Year
  Sex: Male
  Weight: 50 kg

DRUGS (60)
  1. VEDOLIZUMAB [Suspect]
     Active Substance: VEDOLIZUMAB
     Indication: Crohn^s disease
     Dosage: 300 MILLIGRAM
     Route: 042
     Dates: start: 20221120
  2. FERRIC POLYSACCHARIDE COMPLEX [Concomitant]
     Active Substance: FERRIC POLYSACCHARIDE COMPLEX
     Dosage: 150 MILLIGRAM, BID
     Route: 048
     Dates: start: 20221120, end: 202305
  3. IRON SUCROSE [Concomitant]
     Active Substance: IRON SUCROSE
     Dosage: 100 MILLIGRAM, QOD
     Route: 042
     Dates: start: 20230211, end: 20230213
  4. ALBUMIN PREPARED FROM HUMAN PLASMA [Concomitant]
     Indication: Blood albumin abnormal
     Dosage: 10 GRAM, QD
     Route: 042
     Dates: start: 20230211, end: 20230213
  5. ALBUMIN PREPARED FROM HUMAN PLASMA [Concomitant]
     Indication: Protein total decreased
     Dosage: 10 GRAM, QD
     Route: 042
     Dates: start: 20230311, end: 20230317
  6. ALBUMIN PREPARED FROM HUMAN PLASMA [Concomitant]
     Dosage: 10 GRAM, QD
     Route: 042
     Dates: start: 20230322, end: 20230322
  7. ALBUMIN PREPARED FROM HUMAN PLASMA [Concomitant]
     Dosage: 10 GRAM
     Route: 042
     Dates: start: 20230611, end: 20230611
  8. ALBUMIN PREPARED FROM HUMAN PLASMA [Concomitant]
     Dosage: 10 GRAM, QD
     Route: 042
     Dates: start: 20230715, end: 20230723
  9. LEUCOGEN [Concomitant]
     Active Substance: LEUCOGEN
     Indication: White blood cell disorder
     Dosage: 20 MILLIGRAM, TID
     Route: 048
     Dates: start: 20230211, end: 20230213
  10. POTASSIUM CITRATE [Concomitant]
     Active Substance: POTASSIUM CITRATE
     Indication: Blood potassium decreased
     Dosage: 40 MILLILITER
     Route: 048
     Dates: start: 20230211, end: 20230212
  11. Compound glutamine [Concomitant]
     Indication: Inflammatory bowel disease
     Dosage: UNK UNK, TID
     Route: 048
     Dates: start: 20230213, end: 202303
  12. PRANOPROFEN [Concomitant]
     Active Substance: PRANOPROFEN
     Indication: Dry eye
     Dosage: UNK UNK, QD
     Route: 047
     Dates: start: 20230213, end: 20230228
  13. SODIUM HYALURONATE [Concomitant]
     Active Substance: HYALURONATE SODIUM
     Indication: Dry eye
     Dosage: UNK UNK, BID
     Route: 047
     Dates: start: 20230213, end: 20230228
  14. MOXIFLOXACIN HYDROCHLORIDE [Concomitant]
     Active Substance: MOXIFLOXACIN HYDROCHLORIDE\MOXIFLOXACIN HYDROCHLORIDE MONOHYDRATE
     Indication: Antiinflammatory therapy
     Dosage: 250 MILLILITER, QD
     Route: 042
     Dates: start: 20230311, end: 20230315
  15. MOXIFLOXACIN HYDROCHLORIDE [Concomitant]
     Active Substance: MOXIFLOXACIN HYDROCHLORIDE\MOXIFLOXACIN HYDROCHLORIDE MONOHYDRATE
     Dosage: 0.4 GRAM, QD
     Route: 042
     Dates: start: 20230717, end: 20230723
  16. ORNIDAZOLE [Concomitant]
     Active Substance: ORNIDAZOLE
     Indication: Antiinflammatory therapy
     Dosage: 100 MILLILITER, BID
     Route: 042
     Dates: start: 20230311, end: 20230319
  17. ORNIDAZOLE [Concomitant]
     Active Substance: ORNIDAZOLE
     Dosage: 0.5 GRAM, BID
     Route: 042
     Dates: start: 20230321, end: 20230323
  18. ORNIDAZOLE [Concomitant]
     Active Substance: ORNIDAZOLE
     Dosage: 0.5 GRAM, BID
     Route: 042
     Dates: start: 20230717, end: 20230723
  19. BATROXOBIN [Concomitant]
     Active Substance: BATROXOBIN
     Indication: Haemostasis
     Dosage: UNK UNK, BID
     Route: 042
     Dates: start: 20230311, end: 20230319
  20. BATROXOBIN [Concomitant]
     Active Substance: BATROXOBIN
     Dosage: UNK UNK, BID
     Route: 042
     Dates: start: 20230321, end: 20230323
  21. FUROSEMIDE [Concomitant]
     Active Substance: FUROSEMIDE
     Indication: Polyuria
     Dosage: 20 MILLIGRAM, QD
     Route: 042
     Dates: start: 20230311, end: 20230315
  22. FUROSEMIDE [Concomitant]
     Active Substance: FUROSEMIDE
     Dosage: 20 MILLIGRAM
     Route: 042
     Dates: start: 20230430, end: 20230430
  23. FUROSEMIDE [Concomitant]
     Active Substance: FUROSEMIDE
     Dosage: 20 MILLIGRAM, QD
     Route: 048
     Dates: start: 20230317
  24. FUROSEMIDE [Concomitant]
     Active Substance: FUROSEMIDE
     Dosage: 20 MILLIGRAM
     Route: 042
     Dates: start: 20230715, end: 20230715
  25. FUROSEMIDE [Concomitant]
     Active Substance: FUROSEMIDE
     Dosage: 20 MILLIGRAM
     Route: 042
     Dates: start: 20230723, end: 20230723
  26. TRANEXAMIC ACID [Concomitant]
     Active Substance: TRANEXAMIC ACID
     Indication: Haemostasis
     Dosage: 0.5 GRAM, BID
     Route: 042
     Dates: start: 20230311, end: 20230317
  27. TORSEMIDE [Concomitant]
     Active Substance: TORSEMIDE
     Indication: Polyuria
     Dosage: 10 MILLIGRAM, QD
     Route: 042
     Dates: start: 20230315, end: 20230317
  28. TORSEMIDE [Concomitant]
     Active Substance: TORSEMIDE
     Dosage: 10 MILLIGRAM, QD
     Route: 042
     Dates: start: 20230715, end: 20230717
  29. POTASSIUM CHLORIDE [Concomitant]
     Active Substance: POTASSIUM CHLORIDE
     Indication: Mineral supplementation
     Dosage: 0.5 GRAM, TID
     Route: 048
     Dates: start: 20230315, end: 20230319
  30. POTASSIUM CHLORIDE [Concomitant]
     Active Substance: POTASSIUM CHLORIDE
     Dosage: 1.5 GRAM, QD
     Route: 042
     Dates: start: 20230321, end: 20230323
  31. POTASSIUM CHLORIDE [Concomitant]
     Active Substance: POTASSIUM CHLORIDE
     Dosage: 0.5 GRAM, TID
     Route: 048
     Dates: start: 20230430
  32. HYDROCORTISONE SODIUM SUCCINATE [Concomitant]
     Active Substance: HYDROCORTISONE SODIUM SUCCINATE
     Indication: Inflammatory bowel disease
     Dosage: 200 MILLIGRAM, QD
     Route: 042
     Dates: start: 20230317, end: 20230319
  33. CALCIUM CARBONATE\CHOLECALCIFEROL [Concomitant]
     Active Substance: CALCIUM CARBONATE\CHOLECALCIFEROL
     Indication: Mineral supplementation
     Dosage: 0.3 GRAM, QD
     Route: 048
     Dates: start: 20230317, end: 20230319
  34. ILAPRAZOLE [Concomitant]
     Active Substance: ILAPRAZOLE
     Indication: Ulcer
     Dosage: 10 MILLIGRAM, QD
     Route: 042
     Dates: start: 20230317, end: 20230319
  35. SPIRONOLACTONE [Concomitant]
     Active Substance: SPIRONOLACTONE
     Indication: Diuretic therapy
     Dosage: 20 MILLIGRAM, QD
     Route: 048
     Dates: start: 20230317
  36. LOPERAMIDE [Concomitant]
     Active Substance: LOPERAMIDE
     Dosage: 76.89 GRAM
     Route: 042
     Dates: start: 20230314, end: 20230314
  37. DEXAMETHASONE SODIUM PHOSPHATE [Concomitant]
     Active Substance: DEXAMETHASONE PHOSPHATE\DEXAMETHASONE SODIUM PHOSPHATE
     Indication: Transfusion reaction
     Dosage: 1 MILLILITER, QD
     Route: 042
     Dates: start: 20230311, end: 20230313
  38. DEXAMETHASONE SODIUM PHOSPHATE [Concomitant]
     Active Substance: DEXAMETHASONE PHOSPHATE\DEXAMETHASONE SODIUM PHOSPHATE
     Indication: Hypersensitivity
     Dosage: 5 MILLIGRAM
     Route: 042
     Dates: start: 20230429, end: 20230429
  39. DEXAMETHASONE SODIUM PHOSPHATE [Concomitant]
     Active Substance: DEXAMETHASONE PHOSPHATE\DEXAMETHASONE SODIUM PHOSPHATE
     Indication: Adverse drug reaction
     Dosage: 5 MILLIGRAM
     Route: 042
     Dates: start: 20230514, end: 20230514
  40. DEXAMETHASONE SODIUM PHOSPHATE [Concomitant]
     Active Substance: DEXAMETHASONE PHOSPHATE\DEXAMETHASONE SODIUM PHOSPHATE
     Indication: Prophylaxis
     Dosage: 5 MILLIGRAM
     Route: 042
     Dates: start: 20230611, end: 20230611
  41. DEXAMETHASONE SODIUM PHOSPHATE [Concomitant]
     Active Substance: DEXAMETHASONE PHOSPHATE\DEXAMETHASONE SODIUM PHOSPHATE
     Dosage: 5 MILLIGRAM
     Route: 042
     Dates: start: 20230714, end: 20230714
  42. MANNITOL [Concomitant]
     Active Substance: MANNITOL
     Dosage: 750 MILLILITER
     Route: 048
     Dates: start: 20230314, end: 20230314
  43. CALCIUM GLUCONATE [Concomitant]
     Active Substance: CALCIUM GLUCONATE
     Indication: Blood calcium decreased
     Dosage: 10 MILLILITER
     Route: 042
     Dates: start: 20230315, end: 20230315
  44. PREDNISONE ACETATE [Concomitant]
     Active Substance: PREDNISONE ACETATE
     Indication: Inflammatory bowel disease
     Dosage: 15 MILLIGRAM, BID
     Route: 048
     Dates: start: 20230319
  45. VONOPRAZAN FUMARATE [Concomitant]
     Active Substance: VONOPRAZAN FUMARATE
     Indication: Ulcer
     Dosage: 20 MILLIGRAM, QD
     Route: 048
     Dates: start: 20230319
  46. BERBERINE [Concomitant]
     Active Substance: BERBERINE
     Indication: Antidiarrhoeal supportive care
     Dosage: 02 GRAM, TID
     Route: 048
     Dates: start: 20230319, end: 20230923
  47. BERBERINE [Concomitant]
     Active Substance: BERBERINE
     Dosage: 0.2 GRAM
     Route: 048
     Dates: start: 20230718
  48. MONTMORILLONITE [Concomitant]
     Active Substance: MONTMORILLONITE
     Indication: Antidiarrhoeal supportive care
     Dosage: 3 GRAM
     Route: 048
     Dates: start: 20230319, end: 20230320
  49. CARBAZOCHROME SODIUM SULFONATE [Concomitant]
     Active Substance: CARBAZOCHROME SODIUM SULFONATE
     Indication: Haemostasis
     Dosage: 40 MILLIGRAM, QD
     Route: 042
     Dates: start: 20230321, end: 20230323
  50. CARBAZOCHROME SODIUM SULFONATE [Concomitant]
     Active Substance: CARBAZOCHROME SODIUM SULFONATE
     Dosage: 10 MILLIGRAM, TID
     Route: 048
     Dates: start: 20230514
  51. LEVOFLOXACIN [Concomitant]
     Active Substance: LEVOFLOXACIN
     Indication: Antiinflammatory therapy
     Dosage: 0.5 GRAM, QD
     Route: 042
     Dates: start: 20230321, end: 20230323
  52. Live combined bifidobacterium, lactobacillus and enterococcus [Concomitant]
     Indication: Inflammatory bowel disease
     Dosage: 0.42 GRAM, TID
     Route: 048
     Dates: start: 20230321, end: 20230323
  53. PINAVERIUM BROMIDE [Concomitant]
     Active Substance: PINAVERIUM BROMIDE
     Indication: Pain
     Dosage: 50 MILLIGRAM, TID
     Route: 048
     Dates: start: 20230321, end: 20230323
  54. PROMETHAZINE HYDROCHLORIDE [Concomitant]
     Active Substance: PROMETHAZINE HYDROCHLORIDE
     Indication: Prophylaxis
     Dosage: 12.5 MILLIGRAM, QD
     Route: 030
     Dates: start: 20230321, end: 20230322
  55. PROMETHAZINE HYDROCHLORIDE [Concomitant]
     Active Substance: PROMETHAZINE HYDROCHLORIDE
     Indication: Antiallergic therapy
     Dosage: 12.5 MILLIGRAM, QD
     Route: 030
     Dates: start: 20230713, end: 20230714
  56. PROMETHAZINE HYDROCHLORIDE [Concomitant]
     Active Substance: PROMETHAZINE HYDROCHLORIDE
     Dosage: 12.5 MILLIGRAM, QD
     Route: 030
     Dates: start: 20230717, end: 20230718
  57. INFLIXIMAB [Concomitant]
     Active Substance: INFLIXIMAB
     Indication: Inflammatory bowel disease
     Dosage: 0.3 GRAM
     Route: 042
     Dates: start: 20230514, end: 20230514
  58. INFLIXIMAB [Concomitant]
     Active Substance: INFLIXIMAB
     Dosage: 0.3 GRAM
     Route: 042
     Dates: start: 20230714, end: 20230714
  59. VITAMIN B12 [Concomitant]
     Active Substance: CYANOCOBALAMIN
     Dosage: 0.4 MILLILITER, QD
     Route: 030
     Dates: start: 20230717, end: 20230723
  60. FOLIC ACID [Concomitant]
     Active Substance: FOLIC ACID
     Dosage: 5 MILLIGRAM, TID
     Route: 048
     Dates: start: 20230717

REACTIONS (1)
  - Anaemia [Not Recovered/Not Resolved]

NARRATIVE: CASE EVENT DATE: 20230108
